FAERS Safety Report 7507338-X (Version None)
Quarter: 2011Q2

REPORT INFORMATION
  Report Type: 
  Country: None (occurrence: None)
  Receive Date: 20110526
  Receipt Date: 20110523
  Transmission Date: 20111010
  Serious: Yes (Other)
  Sender: FDA-Public Use
  Company Number: DK-PFIZER INC-DK-WYE-G06797510

PATIENT
  Age: 70 Year
  Sex: Male
  Weight: 83 kg

DRUGS (2)
  1. REFACTO [Suspect]
     Indication: FACTOR VIII DEFICIENCY
  2. REFACTO [Suspect]
     Indication: HAEMORRHAGE
     Dosage: 25-50 IU/KG ON DEMAND, FREQUENCY UNKNOWN
     Route: 042
     Dates: start: 20100106, end: 20100729

REACTIONS (1)
  - FACTOR VIII INHIBITION [None]
